FAERS Safety Report 9684654 (Version 2)
Quarter: 2013Q4

REPORT INFORMATION
  Report Type: Spontaneous
  Country: JP (occurrence: JP)
  Receive Date: 20131112
  Receipt Date: 20131218
  Transmission Date: 20140711
  Serious: Yes (Hospitalization)
  Sender: FDA-Public Use
  Company Number: JP-MYLANLABS-2013S1024594

PATIENT
  Age: 73 Year
  Sex: Female

DRUGS (1)
  1. PREDNISOLONE [Suspect]
     Indication: ANTINEUTROPHIL CYTOPLASMIC ANTIBODY
     Route: 048

REACTIONS (2)
  - Diverticulitis [Unknown]
  - Abdominal abscess [Unknown]
